FAERS Safety Report 9388157 (Version 2)
Quarter: 2013Q3

REPORT INFORMATION
  Report Type: Report from Study
  Country: US (occurrence: US)
  Receive Date: 20130708
  Receipt Date: 20130712
  Transmission Date: 20140515
  Serious: Yes (Other)
  Sender: FDA-Public Use
  Company Number: US-BRISTOL-MYERS SQUIBB COMPANY-19061613

PATIENT
  Age: 62 Year
  Sex: Male
  Weight: 98.8 kg

DRUGS (3)
  1. IPILIMUMAB [Suspect]
     Indication: MALIGNANT MELANOMA
     Dosage: TOTAL:1110MG, MANTNCE THRPY:Q12WKS ON 24,36,48+60WKS.?LAST DOSE:25APR13
     Route: 042
     Dates: start: 20130425, end: 20130530
  2. ASPIRIN [Concomitant]
     Route: 048
     Dates: start: 201306
  3. PREDNISONE [Concomitant]
     Route: 048

REACTIONS (1)
  - Retinal artery occlusion [Not Recovered/Not Resolved]
